FAERS Safety Report 5699235-X (Version None)
Quarter: 2008Q2

REPORT INFORMATION
  Report Type: 
  Country: None (occurrence: None)
  Receive Date: 20080407
  Receipt Date: 20080407
  Transmission Date: 20081010
  Serious: Yes (Hospitalization)
  Sender: FDA-Public Use
  Company Number: None

PATIENT
  Sex: Male
  Weight: 73 kg

DRUGS (8)
  1. TEMOZOLOMIDE [Suspect]
     Indication: ACUTE MYELOID LEUKAEMIA
     Dosage: 100MG/M2 (200MG) QD PO  (MISSED 3/9)
     Route: 048
     Dates: start: 20080227, end: 20080312
  2. TEMOZOLOMIDE [Suspect]
     Indication: ACUTE MYELOID LEUKAEMIA
     Dosage: 200MG/M2 (400MG) QD PO
     Route: 048
     Dates: start: 20080317, end: 20080323
  3. COUMADIN [Concomitant]
  4. SEPTRA [Concomitant]
  5. AMBIEN [Concomitant]
  6. SENNA [Concomitant]
  7. COLACE [Concomitant]
  8. FLOMAX [Concomitant]

REACTIONS (5)
  - FEBRILE NEUTROPENIA [None]
  - HAEMOGLOBIN DECREASED [None]
  - PLATELET COUNT DECREASED [None]
  - SYNCOPE [None]
  - URINARY TRACT INFECTION [None]
